FAERS Safety Report 17120550 (Version 2)
Quarter: 2020Q1

REPORT INFORMATION
  Report Type: Spontaneous
  Country: JP (occurrence: JP)
  Receive Date: 20191206
  Receipt Date: 20200123
  Transmission Date: 20200409
  Serious: Yes (Hospitalization)
  Sender: FDA-Public Use
  Company Number: JP-ELI_LILLY_AND_COMPANY-JP201911014062

PATIENT
  Age: 76 Year
  Sex: Female
  Weight: 67 kg

DRUGS (4)
  1. MAGMITT [Concomitant]
     Active Substance: MAGNESIUM OXIDE
     Indication: CONSTIPATION
     Dosage: 750 MG, DAILY
     Route: 048
     Dates: start: 20181030, end: 20191117
  2. SEIBULE [Concomitant]
     Active Substance: MIGLITOL
     Indication: LATENT AUTOIMMUNE DIABETES IN ADULTS
     Dosage: 75 MG, DAILY
     Route: 048
     Dates: start: 20180116, end: 20191117
  3. HUMALOG [Concomitant]
     Active Substance: INSULIN LISPRO
     Indication: LATENT AUTOIMMUNE DIABETES IN ADULTS
     Dosage: 27 INTERNATIONAL UNIT, DAILY
     Route: 058
     Dates: start: 20160621, end: 20191117
  4. INSULIN GLARGINE [Suspect]
     Active Substance: INSULIN GLARGINE
     Indication: LATENT AUTOIMMUNE DIABETES IN ADULTS
     Dosage: 18 INTERNATIONAL UNIT, DAILY
     Route: 058
     Dates: start: 20170905, end: 20191115

REACTIONS (2)
  - Diabetic ketoacidosis [Recovering/Resolving]
  - Product dose omission [Unknown]

NARRATIVE: CASE EVENT DATE: 20191115
